FAERS Safety Report 8211651-0 (Version None)
Quarter: 2012Q1

REPORT INFORMATION
  Report Type: 
  Country: None (occurrence: None)
  Receive Date: 20120315
  Receipt Date: 20120309
  Transmission Date: 20120608
  Serious: Yes (Hospitalization)
  Sender: FDA-Public Use
  Company Number: US-B.I. PHARMACEUTICALS,INC./RIDGEFIELD-2011-BP-04088BP

PATIENT
  Sex: Female

DRUGS (13)
  1. PRADAXA [Suspect]
     Dosage: 300 MG
     Route: 048
     Dates: start: 20110601, end: 20120211
  2. CARVEDILOL [Concomitant]
     Indication: CARDIAC DISORDER
     Dosage: 12.5 MG
     Route: 048
  3. METOLAZONE [Concomitant]
     Indication: CARDIAC FAILURE CONGESTIVE
     Route: 048
  4. LIPITOR [Concomitant]
     Indication: BLOOD CHOLESTEROL INCREASED
     Dosage: 40 MG
     Route: 048
  5. GLIMEPIRIDE [Concomitant]
     Indication: DIABETES MELLITUS
     Dosage: 8 MG
     Route: 048
     Dates: start: 20030101
  6. DIGOXIN [Concomitant]
     Indication: ATRIAL FIBRILLATION
     Dosage: 0.125 MG
     Route: 048
     Dates: start: 20120201
  7. K CHLOR [Concomitant]
     Indication: BLOOD POTASSIUM DECREASED
     Dosage: 8 MEQ
     Route: 048
  8. VITAMIN D [Concomitant]
     Indication: SUPPLEMENTATION THERAPY
     Route: 048
  9. PRADAXA [Suspect]
     Indication: ATRIAL FIBRILLATION
     Dosage: 300 MG
     Route: 048
     Dates: start: 20101101, end: 20110601
  10. BUMEX [Concomitant]
     Indication: CARDIAC FAILURE CONGESTIVE
     Dosage: 1 MG
     Route: 048
     Dates: start: 20120201
  11. PROTONIX [Concomitant]
     Indication: EPIGASTRIC DISCOMFORT
     Dosage: 40 MG
     Route: 048
  12. PRADAXA [Suspect]
     Dosage: 300 MG
     Route: 048
     Dates: start: 20120302
  13. COZAAR [Concomitant]
     Indication: HYPERTENSION
     Dosage: 5 MG
     Route: 048

REACTIONS (4)
  - EPIGASTRIC DISCOMFORT [None]
  - CONSTIPATION [None]
  - RECTAL HAEMORRHAGE [None]
  - HAEMOGLOBIN DECREASED [None]
